FAERS Safety Report 4464851-X (Version None)
Quarter: 2004Q4

REPORT INFORMATION
  Report Type: 
  Country: None (occurrence: None)
  Receive Date: 20041004
  Receipt Date: 20031117
  Transmission Date: 20050328
  Serious: No
  Sender: FDA-Public Use
  Company Number: 354397

PATIENT
  Age: 60 Year
  Sex: Male

DRUGS (1)
  1. COREG [Suspect]
     Dosage: 25MG TWICE PER DAY
     Route: 048

REACTIONS (2)
  - DYSPNOEA [None]
  - HEART RATE IRREGULAR [None]
